FAERS Safety Report 5472571-8 (Version None)
Quarter: 2007Q3

REPORT INFORMATION
  Report Type: 
  Country: None (occurrence: None)
  Receive Date: 20070926
  Receipt Date: 20070913
  Transmission Date: 20080115
  Serious: Yes (Other)
  Sender: FDA-Public Use
  Company Number: ACO_00382_2007

PATIENT
  Age: 24 Month
  Weight: 7.7 kg

DRUGS (2)
  1. TERNELIN (TERNELIN - TIZANIDINE HYDROCHLORIDE) [Suspect]
     Indication: ACCIDENTAL EXPOSURE
     Dosage: 2 MG 1X ORAL
     Route: 048
  2. DIURETICS [Concomitant]

REACTIONS (4)
  - ACCIDENTAL DRUG INTAKE BY CHILD [None]
  - BLOOD PRESSURE SYSTOLIC DECREASED [None]
  - HEART RATE DECREASED [None]
  - WRONG DRUG ADMINISTERED [None]
